FAERS Safety Report 8847434 (Version 1)
Quarter: 2012Q4

REPORT INFORMATION
  Report Type: 
  Country: US (occurrence: US)
  Receive Date: 20121018
  Receipt Date: 20121018
  Transmission Date: 20130627
  Serious: No
  Sender: FDA-Public Use
  Company Number: US-BAYER-2012-108442

PATIENT
  Sex: Female

DRUGS (1)
  1. GADAVIST [Suspect]

REACTIONS (1)
  - No adverse event [None]
